FAERS Safety Report 23765642 (Version 1)
Quarter: 2024Q2

REPORT INFORMATION
  Report Type: Spontaneous
  Country: US (occurrence: US)
  Receive Date: 20240421
  Receipt Date: 20240421
  Transmission Date: 20240715
  Serious: No
  Sender: FDA-Public Use
  Company Number: US-PRINSTON PHARMACEUTICAL INC.-2024PRN00106

PATIENT

DRUGS (1)
  1. ENALAPRIL MALEATE [Suspect]
     Active Substance: ENALAPRIL MALEATE
     Indication: Hypertension
     Dosage: 5 MG, 1X/DAY

REACTIONS (3)
  - Anger [Unknown]
  - Weight decreased [Unknown]
  - Depression [Unknown]
